FAERS Safety Report 19224645 (Version 3)
Quarter: 2023Q2

REPORT INFORMATION
  Report Type: Spontaneous
  Country: US (occurrence: US)
  Receive Date: 20210505
  Receipt Date: 20230517
  Transmission Date: 20230722
  Serious: Yes (Hospitalization, Other)
  Sender: FDA-Public Use
  Company Number: US-GILEAD-2021-0527881

PATIENT
  Sex: Female
  Weight: 98.866 kg

DRUGS (45)
  1. VIREAD [Suspect]
     Active Substance: TENOFOVIR DISOPROXIL FUMARATE
     Indication: HIV infection
     Dosage: UNK
     Route: 048
     Dates: start: 200402, end: 200801
  2. TRUVADA [Suspect]
     Active Substance: EMTRICITABINE\TENOFOVIR DISOPROXIL FUMARATE
     Indication: HIV infection
     Dosage: UNK
     Route: 048
     Dates: start: 2004
  3. TRUVADA [Suspect]
     Active Substance: EMTRICITABINE\TENOFOVIR DISOPROXIL FUMARATE
     Dosage: UNK
     Route: 048
     Dates: start: 20080120, end: 2018
  4. TRUVADA [Suspect]
     Active Substance: EMTRICITABINE\TENOFOVIR DISOPROXIL FUMARATE
     Dosage: UNK
     Route: 048
     Dates: start: 200801, end: 200905
  5. STRIBILD [Suspect]
     Active Substance: COBICISTAT\ELVITEGRAVIR\EMTRICITABINE\TENOFOVIR DISOPROXIL FUMARATE
     Indication: HIV infection
     Dosage: UNK
     Route: 048
     Dates: start: 201512, end: 201512
  6. GENVOYA [Concomitant]
     Active Substance: COBICISTAT\ELVITEGRAVIR\EMTRICITABINE\TENOFOVIR ALAFENAMIDE FUMARATE
  7. ISENTRESS [Concomitant]
     Active Substance: RALTEGRAVIR POTASSIUM
  8. PREZISTA [Concomitant]
     Active Substance: DARUNAVIR ETHANOLATE
  9. ZIAGEN [Concomitant]
     Active Substance: ABACAVIR SULFATE
  10. FUZEON [Concomitant]
     Active Substance: ENFUVIRTIDE
  11. ADVAIR HFA [Concomitant]
     Active Substance: FLUTICASONE PROPIONATE\SALMETEROL XINAFOATE
  12. AFRIN NASAL DECONGESTANT [Concomitant]
  13. ATROVENT [Concomitant]
     Active Substance: IPRATROPIUM BROMIDE
  14. AZITHROMYCIN [Concomitant]
     Active Substance: AZITHROMYCIN
  15. BENZONATATE [Concomitant]
     Active Substance: BENZONATATE
  16. CLOBETASOL [Concomitant]
     Active Substance: CLOBETASOL
  17. DOCUSATE SODIUM [Concomitant]
     Active Substance: DOCUSATE SODIUM
  18. FLUARIX NOS [Concomitant]
     Active Substance: INFLUENZA VIRUS VACCINE
  19. FLUOXETINE [Concomitant]
     Active Substance: FLUOXETINE HYDROCHLORIDE
  20. FLUVIRIN [INFLUENZA VACCINE INACT SAG 3V] [Concomitant]
  21. FUROSEMIDE [Concomitant]
     Active Substance: FUROSEMIDE
  22. GUIATUSS [Concomitant]
     Active Substance: GUAIFENESIN
  23. HYDROCODONE [Concomitant]
     Active Substance: HYDROCODONE
  24. IBUPROFEN [Concomitant]
     Active Substance: IBUPROFEN
  25. INCRUSE ELLIPTA [Concomitant]
     Active Substance: UMECLIDINIUM BROMIDE
  26. KETOROLAC [Concomitant]
     Active Substance: KETOROLAC TROMETHAMINE
  27. LEVETIRACETAM [Concomitant]
     Active Substance: LEVETIRACETAM
  28. LIDOCAINE [Concomitant]
     Active Substance: LIDOCAINE
  29. LOPERAMIDE [Concomitant]
     Active Substance: LOPERAMIDE
  30. LORATADINE [Concomitant]
     Active Substance: LORATADINE
  31. LYRICA [Concomitant]
     Active Substance: PREGABALIN
  32. MELOXICAM [Concomitant]
     Active Substance: MELOXICAM
  33. NASONEX [Concomitant]
     Active Substance: MOMETASONE FUROATE
  34. NICOTINE [Concomitant]
     Active Substance: NICOTINE
  35. OMEPRAZOLE [Concomitant]
     Active Substance: OMEPRAZOLE
  36. ONDANSETRON [Concomitant]
     Active Substance: ONDANSETRON
  37. OXYCODONE [Concomitant]
     Active Substance: OXYCODONE
  38. OYSCO [Concomitant]
  39. OYST-CAL [Concomitant]
  40. PREDNISONE [Concomitant]
     Active Substance: PREDNISONE
  41. PROMETHAZINE [Concomitant]
     Active Substance: PROMETHAZINE HYDROCHLORIDE
  42. PSEUDOEPHEDRINE [Concomitant]
     Active Substance: PSEUDOEPHEDRINE
  43. SULFAMETHOXAZOLE [Concomitant]
     Active Substance: SULFAMETHOXAZOLE
  44. TRAMADOL [Concomitant]
     Active Substance: TRAMADOL
  45. VENTOLIN [Concomitant]
     Active Substance: ALBUTEROL SULFATE

REACTIONS (13)
  - Multiple fractures [Not Recovered/Not Resolved]
  - Osteoporosis [Not Recovered/Not Resolved]
  - Hand fracture [Recovered/Resolved]
  - Cervical vertebral fracture [Recovered/Resolved]
  - Bone cyst [Unknown]
  - Osteopenia [Not Recovered/Not Resolved]
  - Emotional distress [Not Recovered/Not Resolved]
  - Anhedonia [Not Recovered/Not Resolved]
  - Anxiety [Not Recovered/Not Resolved]
  - Pain [Not Recovered/Not Resolved]
  - Rib fracture [Recovered/Resolved]
  - Dysstasia [Unknown]
  - Foot fracture [Recovered/Resolved]

NARRATIVE: CASE EVENT DATE: 20140101
